FAERS Safety Report 9731882 (Version 2)
Quarter: 2014Q1

REPORT INFORMATION
  Report Type: Report from Study
  Country: DE (occurrence: DE)
  Receive Date: 20131205
  Receipt Date: 20140115
  Transmission Date: 20141002
  Serious: Yes (Death)
  Sender: FDA-Public Use
  Company Number: DE-ROCHE-1313224

PATIENT
  Age: 72 Year
  Sex: Male
  Weight: 57 kg

DRUGS (7)
  1. BEVACIZUMAB [Suspect]
     Indication: COLON CANCER
     Route: 042
     Dates: start: 20130827, end: 20131126
  2. OXALIPLATIN [Suspect]
     Indication: COLON CANCER
     Route: 042
     Dates: start: 20130827, end: 20131126
  3. FOLINIC ACID [Suspect]
     Indication: COLON CANCER
     Route: 042
     Dates: start: 20130827, end: 20131126
  4. 5-FU [Suspect]
     Indication: COLON CANCER
     Route: 042
     Dates: start: 20130827, end: 20131126
  5. KEVATRIL [Concomitant]
     Route: 042
  6. INSULIN [Concomitant]
     Indication: DIABETES MELLITUS
  7. VITAMIN B12 [Concomitant]
     Route: 042

REACTIONS (1)
  - Death [Fatal]
